FAERS Safety Report 7113113-0 (Version None)
Quarter: 2010Q4

REPORT INFORMATION
  Report Type: 
  Country: None (occurrence: None)
  Receive Date: 20101119
  Receipt Date: 20101109
  Transmission Date: 20110411
  Serious: Yes (Other)
  Sender: FDA-Public Use
  Company Number: GB-JNJFOC-20101104173

PATIENT
  Sex: Female

DRUGS (2)
  1. STELARA [Suspect]
     Indication: ILL-DEFINED DISORDER
     Route: 058
  2. DIET MEDICATION [Concomitant]

REACTIONS (1)
  - ALANINE AMINOTRANSFERASE INCREASED [None]
